FAERS Safety Report 6983499-6 (Version None)
Quarter: 2010Q3

REPORT INFORMATION
  Report Type: 
  Country: None (occurrence: None)
  Receive Date: 20100914
  Receipt Date: 20080815
  Transmission Date: 20110219
  Serious: No
  Sender: FDA-Public Use
  Company Number: US-WYE-H05613808

PATIENT
  Sex: Male
  Weight: 93.07 kg

DRUGS (3)
  1. ADVIL LIQUI-GELS [Suspect]
     Indication: MUSCLE RELAXANT THERAPY
     Route: 048
     Dates: start: 20080501
  2. UROXATRAL [Concomitant]
  3. PROSCAR [Concomitant]

REACTIONS (1)
  - CONTUSION [None]
